FAERS Safety Report 11272788 (Version 1)
Quarter: 2015Q3

REPORT INFORMATION
  Report Type: Spontaneous
  Country: FI (occurrence: FI)
  Receive Date: 20150715
  Receipt Date: 20150715
  Transmission Date: 20151125
  Serious: Yes (Disabling)
  Sender: FDA-Public Use
  Company Number: FI-AMGEN-FINSP2015069667

PATIENT
  Age: 66 Year
  Sex: Male

DRUGS (5)
  1. ZYTIGA [Concomitant]
     Active Substance: ABIRATERONE ACETATE
     Indication: DISEASE PROGRESSION
     Dosage: UNK
     Route: 048
     Dates: start: 201301
  2. FIRMAGON                           /01764802/ [Concomitant]
  3. CABAZITAXEL [Concomitant]
     Active Substance: CABAZITAXEL
     Indication: DISEASE PROGRESSION
  4. XGEVA [Suspect]
     Active Substance: DENOSUMAB
     Indication: PROPHYLAXIS
     Dosage: 120 MG, QMO
     Route: 058
     Dates: start: 201204, end: 201303
  5. PREDNISON [Concomitant]
     Active Substance: PREDNISONE
     Indication: DISEASE PROGRESSION
     Route: 048

REACTIONS (1)
  - Osteonecrosis of jaw [Recovered/Resolved with Sequelae]

NARRATIVE: CASE EVENT DATE: 20130322
